FAERS Safety Report 8496040-6 (Version None)
Quarter: 2012Q3

REPORT INFORMATION
  Report Type: 
  Country: None (occurrence: None)
  Receive Date: 20120709
  Receipt Date: 20120625
  Transmission Date: 20120928
  Serious: Yes (Other)
  Sender: FDA-Public Use
  Company Number: GB-ROCHE-785965

PATIENT
  Age: 47 Year
  Sex: Male
  Weight: 113 kg

DRUGS (15)
  1. CITALOPRAM HYDROBROMIDE [Interacting]
     Indication: PRODUCT USED FOR UNKNOWN INDICATION
     Route: 065
  2. GRANISETRON [Interacting]
     Indication: PRODUCT USED FOR UNKNOWN INDICATION
     Route: 042
  3. ERLOTINIB HYDROCHLORIDE [Interacting]
     Indication: PRODUCT USED FOR UNKNOWN INDICATION
     Dosage: DRUG WITH DRAWAN
     Route: 048
  4. DARBEPOETIN ALFA [Interacting]
     Indication: PRODUCT USED FOR UNKNOWN INDICATION
     Route: 065
  5. LOPERAMIDE [Interacting]
     Indication: PRODUCT USED FOR UNKNOWN INDICATION
     Route: 065
  6. CARBOPLATIN [Suspect]
     Indication: PRODUCT USED FOR UNKNOWN INDICATION
     Route: 042
  7. CIMETIDINE [Interacting]
     Indication: PRODUCT USED FOR UNKNOWN INDICATION
     Route: 042
  8. DIPHENHYDRAMINE HCL [Interacting]
     Indication: PRODUCT USED FOR UNKNOWN INDICATION
     Route: 065
  9. OXYCODONE HYDROCHLORIDE [Interacting]
     Indication: PAIN
     Route: 065
  10. ALPRAZOLAM [Interacting]
     Indication: PRODUCT USED FOR UNKNOWN INDICATION
     Route: 065
  11. DEXAMETHASONE [Interacting]
     Indication: PRODUCT USED FOR UNKNOWN INDICATION
     Route: 065
  12. BEVACIZUMAB [Interacting]
     Indication: PRODUCT USED FOR UNKNOWN INDICATION
     Route: 065
  13. VITAMIN K TAB [Interacting]
     Indication: PRODUCT USED FOR UNKNOWN INDICATION
     Route: 065
  14. PACLITAXEL [Interacting]
     Indication: PRODUCT USED FOR UNKNOWN INDICATION
     Route: 042
  15. WARFARIN SODIUM [Interacting]
     Indication: PRODUCT USED FOR UNKNOWN INDICATION
     Route: 065

REACTIONS (7)
  - CONTUSION [None]
  - INTERNATIONAL NORMALISED RATIO INCREASED [None]
  - DIARRHOEA [None]
  - SWELLING [None]
  - HAEMATOMA [None]
  - DRUG INTERACTION [None]
  - RASH [None]
